FAERS Safety Report 10210478 (Version 1)
Quarter: 2014Q2

REPORT INFORMATION
  Report Type: Spontaneous
  Country: IT (occurrence: None)
  Receive Date: 20140528
  Receipt Date: 20140528
  Transmission Date: 20141212
  Serious: Yes (Other)
  Sender: FDA-Public Use
  Company Number: 1384340

PATIENT
  Age: 36 Month
  Sex: Male

DRUGS (1)
  1. VALPROIC ACID [Suspect]
     Indication: PETIT MAL EPILEPSY

REACTIONS (2)
  - Petit mal epilepsy [None]
  - Condition aggravated [None]
